FAERS Safety Report 9084430 (Version 1)
Quarter: 2013Q1

REPORT INFORMATION
  Report Type: Report from Study
  Country: DE (occurrence: DE)
  Receive Date: 20130131
  Receipt Date: 20130131
  Transmission Date: 20140127
  Serious: Yes (Hospitalization)
  Sender: FDA-Public Use
  Company Number: DE-ROCHE-1178910

PATIENT
  Sex: Female

DRUGS (4)
  1. RANIBIZUMAB [Suspect]
     Indication: AGE-RELATED MACULAR DEGENERATION
     Route: 050
     Dates: start: 20110420
  2. RANIBIZUMAB [Suspect]
     Route: 050
     Dates: start: 20120416
  3. RANIBIZUMAB [Suspect]
     Route: 050
     Dates: start: 20120521
  4. RANIBIZUMAB [Suspect]
     Route: 050
     Dates: start: 20120913

REACTIONS (1)
  - Myocardial infarction [Unknown]
